FAERS Safety Report 16826034 (Version 1)
Quarter: 2019Q3

REPORT INFORMATION
  Report Type: Spontaneous
  Country: US (occurrence: US)
  Receive Date: 20190729
  Receipt Date: 20190729
  Transmission Date: 20191005
  Serious: No
  Sender: FDA-Public Use
  Company Number: None

PATIENT
  Age: 22 Year
  Sex: Female

DRUGS (1)
  1. HUMIRA [Suspect]
     Active Substance: ADALIMUMAB
     Indication: CROHN^S DISEASE
     Dosage: ?          OTHER FREQUENCY:EVERY7DAYS ;?
     Route: 058
     Dates: start: 20190516

REACTIONS (3)
  - Faeces discoloured [None]
  - Urticaria [None]
  - Pyrexia [None]

NARRATIVE: CASE EVENT DATE: 20190608
